FAERS Safety Report 24416458 (Version 4)
Quarter: 2025Q3

REPORT INFORMATION
  Report Type: Spontaneous
  Country: JP (occurrence: JP)
  Receive Date: 20241009
  Receipt Date: 20250722
  Transmission Date: 20251020
  Serious: Yes (Other)
  Sender: BAUSCH AND LOMB
  Company Number: JP-BAUSCH-BL-2024-015014

PATIENT
  Age: 6 Decade
  Sex: Female

DRUGS (8)
  1. BRODALUMAB [Suspect]
     Active Substance: BRODALUMAB
     Indication: Psoriasis
     Route: 058
     Dates: start: 201910, end: 202107
  2. BRODALUMAB [Suspect]
     Active Substance: BRODALUMAB
     Route: 058
     Dates: start: 202107, end: 202203
  3. BRODALUMAB [Suspect]
     Active Substance: BRODALUMAB
     Route: 058
     Dates: start: 202203, end: 20230721
  4. BRODALUMAB [Suspect]
     Active Substance: BRODALUMAB
     Route: 058
     Dates: start: 202409
  5. BRODALUMAB [Suspect]
     Active Substance: BRODALUMAB
     Route: 058
     Dates: start: 202409, end: 2025
  6. BRODALUMAB [Suspect]
     Active Substance: BRODALUMAB
     Route: 058
     Dates: start: 202502
  7. BRODALUMAB [Suspect]
     Active Substance: BRODALUMAB
     Route: 058
     Dates: end: 20230721
  8. BRODALUMAB [Suspect]
     Active Substance: BRODALUMAB
     Route: 058
     Dates: end: 202502

REACTIONS (3)
  - Breast cancer [Recovered/Resolved]
  - Off label use [Unknown]
  - Off label use [Unknown]

NARRATIVE: CASE EVENT DATE: 20210701
